FAERS Safety Report 7825085-1 (Version None)
Quarter: 2011Q4

REPORT INFORMATION
  Report Type: 
  Country: None (occurrence: None)
  Receive Date: 20111019
  Receipt Date: 20110811
  Transmission Date: 20120403
  Serious: No
  Sender: FDA-Public Use
  Company Number: US-BRISTOL-MYERS SQUIBB COMPANY-15966070

PATIENT
  Age: 58 Year
  Sex: Female

DRUGS (3)
  1. VERAPAMIL [Concomitant]
  2. SYNTHROID [Concomitant]
  3. AVALIDE [Suspect]
     Dosage: STARTED SEVERAL YEARS BACK AND STOPED ON 24JUL11 AND RESTARTED ON 10AUG11.

REACTIONS (1)
  - OROPHARYNGEAL PAIN [None]
